FAERS Safety Report 9023925 (Version 1)
Quarter: 2013Q1

REPORT INFORMATION
  Report Type: Spontaneous
  Country: US (occurrence: US)
  Receive Date: 20130121
  Receipt Date: 20130121
  Transmission Date: 20140127
  Serious: No
  Sender: FDA-Public Use
  Company Number: US-PFIZER INC-2013020797

PATIENT
  Age: 57 Year
  Sex: Male

DRUGS (5)
  1. DOXYCYCLINE HYCLATE [Suspect]
     Dosage: UNK
  2. PHENERGAN [Suspect]
     Dosage: UNK
  3. SYMBICORT [Suspect]
     Dosage: UNK
  4. BACTRIM [Suspect]
     Dosage: UNK
  5. RECLAST [Suspect]
     Dosage: 5.0 MG ONCE YEARLY

REACTIONS (1)
  - Drug hypersensitivity [Unknown]
